FAERS Safety Report 8242979-6 (Version None)
Quarter: 2012Q1

REPORT INFORMATION
  Report Type: 
  Country: None (occurrence: None)
  Receive Date: 20120329
  Receipt Date: 20120323
  Transmission Date: 20120608
  Serious: Yes (Hospitalization, Disabling)
  Sender: FDA-Public Use
  Company Number: US-PFIZER INC-2012076166

PATIENT
  Sex: Male
  Weight: 95.238 kg

DRUGS (5)
  1. INSULIN [Concomitant]
     Indication: DIABETES MELLITUS
     Dosage: UNK
  2. ACETYLSALICYLIC ACID [Concomitant]
     Dosage: UNK
  3. NEURONTIN [Suspect]
     Indication: NEURALGIA
  4. NEURONTIN [Suspect]
     Indication: DIABETIC NEUROPATHY
     Dosage: UNK
     Route: 048
     Dates: start: 20030707
  5. NORVASC [Suspect]
     Dosage: UNK
     Route: 048

REACTIONS (10)
  - ARTHRITIS [None]
  - SURGERY [None]
  - PANCREATIC DISORDER [None]
  - BLOOD TRIGLYCERIDES ABNORMAL [None]
  - DIZZINESS [None]
  - IRRITABLE BOWEL SYNDROME [None]
  - NEURALGIA [None]
  - NEUROPATHY PERIPHERAL [None]
  - GASTROINTESTINAL DISORDER [None]
  - GLYCOSYLATED HAEMOGLOBIN INCREASED [None]
